FAERS Safety Report 15502830 (Version 1)
Quarter: 2018Q4

REPORT INFORMATION
  Report Type: Spontaneous
  Country: US (occurrence: US)
  Receive Date: 20181008
  Receipt Date: 20181008
  Transmission Date: 20190205
  Serious: Yes (Other)
  Sender: FDA-Public Use
  Company Number: None

PATIENT
  Age: 34 Year
  Sex: Female
  Weight: 85.5 kg

DRUGS (1)
  1. LEVOFLOXACIN. [Suspect]
     Active Substance: LEVOFLOXACIN
     Indication: EAR INFECTION
     Dosage: ?          QUANTITY:1 DF DOSAGE FORM;?
     Route: 048
     Dates: start: 20160215

REACTIONS (4)
  - Pain [None]
  - Hypoaesthesia [None]
  - Decreased activity [None]
  - Paraesthesia [None]

NARRATIVE: CASE EVENT DATE: 20160220
